FAERS Safety Report 13499641 (Version 1)
Quarter: 2017Q2

REPORT INFORMATION
  Report Type: Spontaneous
  Country: US (occurrence: None)
  Receive Date: 20170501
  Receipt Date: 20170501
  Transmission Date: 20170830
  Serious: Yes (Life-Threatening, Hospitalization, Disabling)
  Sender: FDA-Public Use
  Company Number: None

PATIENT
  Age: 68 Year
  Sex: Male
  Weight: 95.34 kg

DRUGS (1)
  1. INVEGA SUSTENNA [Suspect]
     Active Substance: PALIPERIDONE PALMITATE
     Indication: PRODUCT USED FOR UNKNOWN INDICATION
     Dosage: ?          QUANTITY:AKING OR CC;FO./L/T,FI..{;?
     Dates: start: 20150901

REACTIONS (9)
  - Vision blurred [None]
  - Cellulitis staphylococcal [None]
  - Fall [None]
  - Cellulitis [None]
  - Fatigue [None]
  - Malaise [None]
  - Dysphonia [None]
  - Asthenia [None]
  - Muscle spasms [None]

NARRATIVE: CASE EVENT DATE: 201512
